FAERS Safety Report 6020180-4 (Version None)
Quarter: 2008Q4

REPORT INFORMATION
  Report Type: 
  Country: None (occurrence: None)
  Receive Date: 20081226
  Receipt Date: 20081219
  Transmission Date: 20090506
  Serious: Yes (Hospitalization)
  Sender: FDA-Public Use
  Company Number: PHHO2008DE14455

PATIENT
  Sex: Male
  Weight: 74 kg

DRUGS (6)
  1. CYCLOSPORINE [Suspect]
     Indication: RENAL TRANSPLANT
     Dosage: 100 MG, BID
     Route: 048
     Dates: start: 20080416
  2. MYFORTIC [Suspect]
     Indication: RENAL TRANSPLANT
     Dosage: 360 MG, BID
     Route: 048
     Dates: start: 20080416
  3. MYFORTIC [Suspect]
     Dosage: 360 MG, TID
     Dates: start: 20080807
  4. MYFORTIC [Suspect]
     Dosage: 360 MG, BID
     Dates: start: 20080820
  5. MYFORTIC [Suspect]
     Dosage: 360 MG, TID
     Dates: start: 20081211
  6. NO TREATMENT RECEIVED NOMED [Suspect]
     Indication: RENAL TRANSPLANT

REACTIONS (5)
  - ARTERIAL DISORDER [None]
  - BLOOD CREATININE INCREASED [None]
  - KIDNEY FIBROSIS [None]
  - NEPHROPATHY TOXIC [None]
  - RENAL TUBULAR ATROPHY [None]
